FAERS Safety Report 5421263-X (Version None)
Quarter: 2007Q3

REPORT INFORMATION
  Report Type: 
  Country: None (occurrence: None)
  Receive Date: 20070817
  Receipt Date: 20070813
  Transmission Date: 20080115
  Serious: Yes (Hospitalization)
  Sender: FDA-Public Use
  Company Number: 017179

PATIENT
  Age: 41 Year
  Sex: Male

DRUGS (1)
  1. CLARAVIS [Suspect]
     Indication: SWEAT GLAND INFECTION
     Dosage: 10 MG, QD, ORAL
     Route: 048
     Dates: start: 20020101, end: 20070622

REACTIONS (1)
  - RENAL TRANSPLANT [None]
